FAERS Safety Report 5835481-X (Version None)
Quarter: 2008Q3

REPORT INFORMATION
  Report Type: 
  Country: None (occurrence: None)
  Receive Date: 20080806
  Receipt Date: 20080730
  Transmission Date: 20090109
  Serious: Yes (Other)
  Sender: FDA-Public Use
  Company Number: US-JNJCH-2008020192

PATIENT
  Age: 2 Year
  Sex: Female

DRUGS (1)
  1. CHILDREN'S ZYRTEC ALLERGY SYRUP [Suspect]
     Indication: SEASONAL ALLERGY
     Dosage: TEXT:UNSPECIFIED
     Route: 048
     Dates: start: 20070718, end: 20080718

REACTIONS (4)
  - ABNORMAL BEHAVIOUR [None]
  - ANGER [None]
  - CONDITION AGGRAVATED [None]
  - WRONG DRUG ADMINISTERED [None]
